FAERS Safety Report 14947571 (Version 4)
Quarter: 2019Q1

REPORT INFORMATION
  Report Type: Spontaneous
  Country: US (occurrence: US)
  Receive Date: 20180529
  Receipt Date: 20190322
  Transmission Date: 20190417
  Serious: Yes (Hospitalization, Other)
  Sender: FDA-Public Use
  Company Number: US-AMGEN-USASP2018071923

PATIENT
  Age: 65 Year
  Sex: Female
  Weight: 90.72 kg

DRUGS (9)
  1. TAMOXIFEN [Concomitant]
     Active Substance: TAMOXIFEN
     Indication: BREAST CANCER STAGE IV
     Dosage: UNK
     Dates: start: 20181120
  2. IBRANCE [Suspect]
     Active Substance: PALBOCICLIB
     Indication: NEOPLASM MALIGNANT
     Dosage: 125 MG, QD (1 CAPSULE BY MOUTH DAILY FOR 21 DAYS , THEN 7 DAYS OFF)
     Route: 048
     Dates: start: 201709, end: 201811
  3. COUMADIN [Concomitant]
     Active Substance: WARFARIN SODIUM
     Dosage: 1 MG, QD
     Route: 048
     Dates: start: 201711
  4. HYDROCHLOROTHIAZIDE. [Concomitant]
     Active Substance: HYDROCHLOROTHIAZIDE
     Indication: BLOOD PRESSURE INCREASED
     Dosage: 25 MG, QD
     Route: 048
     Dates: start: 201511
  5. LIPITOR [Concomitant]
     Active Substance: ATORVASTATIN CALCIUM
     Indication: BLOOD CHOLESTEROL INCREASED
     Dosage: 20 MG, QD
     Route: 048
     Dates: start: 201511
  6. XGEVA [Suspect]
     Active Substance: DENOSUMAB
     Indication: PROPHYLAXIS
     Dosage: UNK UNK, QMO
     Route: 065
     Dates: start: 201811
  7. FASLODEX [Suspect]
     Active Substance: FULVESTRANT
     Indication: PRODUCT USED FOR UNKNOWN INDICATION
     Dosage: 500 MG (250 MG FOR EACH SIDE), QMO
     Route: 065
  8. PROLIA [Suspect]
     Active Substance: DENOSUMAB
     Indication: BONE LOSS
     Dosage: UNK UNK, Q6MO
     Route: 065
  9. IBRANCE [Suspect]
     Active Substance: PALBOCICLIB
     Indication: HORMONE THERAPY

REACTIONS (12)
  - Blood pressure increased [Unknown]
  - Cataract [Unknown]
  - Arthropathy [Unknown]
  - Oedema [Unknown]
  - Arthritis [Not Recovered/Not Resolved]
  - Throat tightness [Unknown]
  - Cough [Unknown]
  - Hot flush [Not Recovered/Not Resolved]
  - Breast cancer metastatic [Unknown]
  - Migraine with aura [Recovered/Resolved]
  - Musculoskeletal disorder [Unknown]
  - Vertebral lesion [Unknown]

NARRATIVE: CASE EVENT DATE: 201708
